FAERS Safety Report 25507493 (Version 3)
Quarter: 2025Q3

REPORT INFORMATION
  Report Type: Report from Study
  Country: CA (occurrence: CA)
  Receive Date: 20250703
  Receipt Date: 20250712
  Transmission Date: 20251020
  Serious: Yes (Other)
  Sender: CELLTRION
  Company Number: CA-CELLTRION INC.-2025CA002784

PATIENT

DRUGS (3)
  1. USTEKINUMAB [Suspect]
     Active Substance: USTEKINUMAB
     Indication: Crohn^s disease
     Route: 058
     Dates: start: 20241125
  2. USTEKINUMAB [Suspect]
     Active Substance: USTEKINUMAB
     Dosage: 90 MG, EVERY 4 WEEKS
     Route: 058
  3. USTEKINUMAB [Suspect]
     Active Substance: USTEKINUMAB
     Indication: Crohn^s disease
     Route: 042
     Dates: start: 20241125

REACTIONS (6)
  - Arthropathy [Recovered/Resolved]
  - Faecal calprotectin increased [Unknown]
  - Diarrhoea [Unknown]
  - Rash pruritic [Recovered/Resolved]
  - Off label use [Unknown]
  - Intentional dose omission [Unknown]

NARRATIVE: CASE EVENT DATE: 20250121
